FAERS Safety Report 6974315-7 (Version None)
Quarter: 2010Q3

REPORT INFORMATION
  Report Type: 
  Country: None (occurrence: None)
  Receive Date: 20100909
  Receipt Date: 20100827
  Transmission Date: 20110219
  Serious: Yes (Hospitalization)
  Sender: FDA-Public Use
  Company Number: PHFR2010GB02298

PATIENT
  Sex: Male

DRUGS (5)
  1. CLOZARIL [Suspect]
     Indication: SCHIZOPHRENIA
     Dosage: 200-225 MG/DAY
     Route: 048
     Dates: start: 20100601
  2. CLOZARIL [Suspect]
     Dosage: 125 MG, QD
     Route: 048
     Dates: start: 20100723, end: 20100804
  3. DEPAKOTE [Concomitant]
     Dosage: 750 MG, BID
  4. HALOPERIDOL [Concomitant]
     Dosage: 2 MG, QD
  5. HALOPERIDOL [Concomitant]
     Dosage: 2 MG, BID

REACTIONS (21)
  - ALANINE AMINOTRANSFERASE INCREASED [None]
  - BLOOD ALBUMIN DECREASED [None]
  - BLOOD AMYLASE INCREASED [None]
  - BLOOD CREATININE INCREASED [None]
  - BLOOD PRESSURE FLUCTUATION [None]
  - BLOOD TEST ABNORMAL [None]
  - BLOOD UREA INCREASED [None]
  - C-REACTIVE PROTEIN INCREASED [None]
  - GLOMERULAR FILTRATION RATE DECREASED [None]
  - HEPATITIS [None]
  - LOWER RESPIRATORY TRACT INFECTION [None]
  - LUNG CONSOLIDATION [None]
  - MALAISE [None]
  - NAUSEA [None]
  - NEUTROPHILIA [None]
  - ORTHOSTATIC HYPOTENSION [None]
  - PALPITATIONS [None]
  - RENAL FAILURE ACUTE [None]
  - TACHYCARDIA [None]
  - WEIGHT DECREASED [None]
  - YELLOW SKIN [None]
